FAERS Safety Report 7911548-7 (Version None)
Quarter: 2011Q4

REPORT INFORMATION
  Report Type: 
  Country: None (occurrence: None)
  Receive Date: 20111101
  Receipt Date: 20110906
  Transmission Date: 20120403
  Serious: Yes (Other)
  Sender: FDA-Public Use
  Company Number: 11-1962

PATIENT
  Age: 41 Year
  Sex: Female
  Weight: 82.1 kg

DRUGS (6)
  1. XEOMIN [Suspect]
  2. CLONAZEPAM [Concomitant]
  3. FLEXETIL (CYCLOBENZAPRINE HYDROCHLORIDE) [Concomitant]
  4. XEOMIN [Suspect]
     Indication: TORTICOLLIS
     Dosage: 150 IU, 1 IN 1 TOTAL, INTRAMUSCULAR
     Route: 030
     Dates: start: 20110829, end: 20110829
  5. ACTOS [Concomitant]
  6. CYMBALTA [Concomitant]

REACTIONS (1)
  - MYALGIA [None]
